FAERS Safety Report 4987542-5 (Version None)
Quarter: 2006Q2

REPORT INFORMATION
  Report Type: 
  Country: None (occurrence: None)
  Receive Date: 20060427
  Receipt Date: 20060427
  Transmission Date: 20061013
  Serious: No
  Sender: FDA-Public Use
  Company Number: None

PATIENT
  Age: 25 Year
  Sex: Male
  Weight: 87.5 kg

DRUGS (16)
  1. LUNESTA [Suspect]
     Indication: INSOMNIA
     Dosage: 2 MG DAILY AT BEDTIME BY MOUTH
     Dates: start: 20050822
  2. LUNESTA [Suspect]
     Indication: INSOMNIA
     Dosage: 2 MG DAILY AT BEDTIME BY MOUTH
     Dates: start: 20060103
  3. AMITRIPTYLINE HCL [Concomitant]
  4. CLONAZEPAM [Concomitant]
  5. ESOMEPRAZOLE [Concomitant]
  6. GABAPENTIN [Concomitant]
  7. METHYLPHENIDATE HCL [Concomitant]
  8. OXYCODONE [Concomitant]
  9. OXYCODONE SR (OXYCONTIN) [Concomitant]
  10. PAROXETINE [Concomitant]
  11. RIZATRIPTAN [Concomitant]
  12. SULINDAC [Concomitant]
  13. SUMATRIPTAN SUCCINATE [Concomitant]
  14. TEMAZEPAM [Concomitant]
  15. ZOLPIDEM TARTRATE [Concomitant]
  16. .... [Concomitant]

REACTIONS (2)
  - FALL [None]
  - SLEEP WALKING [None]
